FAERS Safety Report 6659832-1 (Version None)
Quarter: 2010Q1

REPORT INFORMATION
  Report Type: 
  Country: None (occurrence: None)
  Receive Date: 20100330
  Receipt Date: 20100330
  Transmission Date: 20100710
  Serious: Yes (Other)
  Sender: FDA-Public Use
  Company Number: None

PATIENT
  Age: 78 Year
  Sex: Female
  Weight: 77.1115 kg

DRUGS (2)
  1. HYDROXYCHLOROQUINE SULFATE [Suspect]
     Indication: ARTHRITIS
     Dosage: 1 WK-1 PILL THEN ; 2 PILLS A DAY MOUTH WITH FOODS
     Route: 048
     Dates: start: 20100113, end: 20100217
  2. HYDROXYCHLOROQUINE SULFATE [Suspect]
     Indication: PAIN
     Dosage: 1 WK-1 PILL THEN ; 2 PILLS A DAY MOUTH WITH FOODS
     Route: 048
     Dates: start: 20100113, end: 20100217

REACTIONS (8)
  - ALOPECIA [None]
  - ERYTHEMA [None]
  - FATIGUE [None]
  - FEELING ABNORMAL [None]
  - HYPOACUSIS [None]
  - PRURITUS [None]
  - RASH [None]
  - VISION BLURRED [None]
